FAERS Safety Report 6568928-4 (Version None)
Quarter: 2010Q1

REPORT INFORMATION
  Report Type: 
  Country: None (occurrence: None)
  Receive Date: 20100128
  Receipt Date: 20100118
  Transmission Date: 20100710
  Serious: Yes (Hospitalization, Other)
  Sender: FDA-Public Use
  Company Number: 2010SP003606

PATIENT
  Age: 54 Year
  Sex: Male

DRUGS (3)
  1. REXER (MIRTAZAPINE /01293201/) [Suspect]
     Indication: BIPOLAR DISORDER
     Dosage: 30 MG;QD;PO
     Route: 048
     Dates: start: 20080101, end: 20090727
  2. ADALAT [Suspect]
     Indication: HYPERTENSION
     Dosage: 10 MG;QD;PO
     Route: 048
     Dates: start: 20080101, end: 20090727
  3. IDALPREM (LORAZEPAM) [Suspect]
     Indication: ANXIETY
     Dosage: PO
     Route: 048
     Dates: start: 20080101, end: 20090727

REACTIONS (5)
  - ENCEPHALITIS VIRAL [None]
  - ENTEROVIRUS INFECTION [None]
  - INAPPROPRIATE ANTIDIURETIC HORMONE SECRETION [None]
  - OSMOTIC DEMYELINATION SYNDROME [None]
  - STATUS EPILEPTICUS [None]
